FAERS Safety Report 6090479-4 (Version None)
Quarter: 2009Q1

REPORT INFORMATION
  Report Type: 
  Country: None (occurrence: None)
  Receive Date: 20090224
  Receipt Date: 20090102
  Transmission Date: 20090719
  Serious: No
  Sender: FDA-Public Use
  Company Number: US-ABBOTT-09P-163-0495661-00

PATIENT
  Sex: Male

DRUGS (1)
  1. SIMCOR [Suspect]
     Indication: CARDIAC DISORDER
     Dosage: 1000/20
     Route: 048
     Dates: start: 20081101

REACTIONS (6)
  - CHEST DISCOMFORT [None]
  - GENERALISED OEDEMA [None]
  - NAUSEA [None]
  - PRURITUS [None]
  - RASH [None]
  - RASH PAPULAR [None]
